FAERS Safety Report 6645972-X (Version None)
Quarter: 2010Q1

REPORT INFORMATION
  Report Type: 
  Country: None (occurrence: None)
  Receive Date: 20100318
  Receipt Date: 20100309
  Transmission Date: 20100710
  Serious: Yes (Hospitalization)
  Sender: FDA-Public Use
  Company Number: UTC-000936

PATIENT
  Age: 44 Year
  Sex: Female

DRUGS (6)
  1. REMODULIN [Suspect]
     Indication: PULMONARY ARTERIAL HYPERTENSION
     Dosage: 72 UG/KG (0.05 UG/KG,1 IN 1 MIN),INTRAVENOUS
     Route: 042
     Dates: start: 20090801
  2. TRACLEER [Concomitant]
  3. COUMADIN (WARARIN SODIUM) [Concomitant]
  4. OXYGEN (OXYGEN) [Concomitant]
  5. DIURETICS (DIURETICS) [Concomitant]
  6. LOMOTIL (LOMOTIL /00034001/) [Concomitant]

REACTIONS (6)
  - CONDITION AGGRAVATED [None]
  - DIARRHOEA [None]
  - EYE INFECTION STAPHYLOCOCCAL [None]
  - OEDEMA [None]
  - PNEUMONIA [None]
  - PULMONARY ARTERIAL HYPERTENSION [None]
